FAERS Safety Report 16458338 (Version 1)
Quarter: 2019Q2

REPORT INFORMATION
  Report Type: Report from Study
  Country: None (occurrence: US)
  Receive Date: 20190620
  Receipt Date: 20190620
  Transmission Date: 20190711
  Serious: Yes (Hospitalization, Other)
  Sender: FDA-Public Use
  Company Number: US-ABBVIE-19K-163-2757598-00

PATIENT
  Age: 38 Year
  Sex: Male
  Weight: 71.28 kg

DRUGS (9)
  1. GABAPENTIN. [Concomitant]
     Active Substance: GABAPENTIN
     Indication: PRODUCT USED FOR UNKNOWN INDICATION
  2. POSACONAZOLE [Concomitant]
     Active Substance: POSACONAZOLE
     Indication: PROPHYLAXIS
  3. VENCLEXTA [Suspect]
     Active Substance: VENETOCLAX
     Indication: MYELODYSPLASTIC SYNDROME
     Route: 048
     Dates: start: 20181112, end: 20190311
  4. FENTANYL. [Concomitant]
     Active Substance: FENTANYL
     Indication: PAIN
  5. LEVAQUIN [Concomitant]
     Active Substance: LEVOFLOXACIN
     Indication: PROPHYLAXIS
  6. TYLENOL [Concomitant]
     Active Substance: ACETAMINOPHEN
     Indication: PRODUCT USED FOR UNKNOWN INDICATION
  7. VENCLEXTA [Suspect]
     Active Substance: VENETOCLAX
     Indication: ACUTE MYELOID LEUKAEMIA
     Dosage: 3 WEEKS ON AND 1 WEEK OFF
     Route: 048
     Dates: start: 201903, end: 201904
  8. NORVASC [Concomitant]
     Active Substance: AMLODIPINE BESYLATE
     Indication: BLOOD PRESSURE MEASUREMENT
  9. ACYCLOVIR. [Concomitant]
     Active Substance: ACYCLOVIR
     Indication: PROPHYLAXIS

REACTIONS (18)
  - Acute graft versus host disease [Unknown]
  - Anxiety [Unknown]
  - Platelet count decreased [Unknown]
  - Melaena [Recovered/Resolved]
  - Pancytopenia [Recovering/Resolving]
  - Transplant [Unknown]
  - Diarrhoea [Unknown]
  - Haematocrit decreased [Unknown]
  - Neutropenia [Unknown]
  - Constipation [Recovered/Resolved]
  - Haemoglobin decreased [Unknown]
  - Blood count abnormal [Unknown]
  - Flatulence [Recovered/Resolved]
  - Neutrophil count decreased [Unknown]
  - Acute myeloid leukaemia [Unknown]
  - Calcinosis [Unknown]
  - Dehydration [Unknown]
  - Haematochezia [Recovered/Resolved]

NARRATIVE: CASE EVENT DATE: 20181226
